FAERS Safety Report 10065545 (Version 1)
Quarter: 2014Q2

REPORT INFORMATION
  Report Type: Spontaneous
  Country: ES (occurrence: ES)
  Receive Date: 20140408
  Receipt Date: 20140408
  Transmission Date: 20141212
  Serious: Yes (Life-Threatening, Hospitalization)
  Sender: FDA-Public Use
  Company Number: ES-DSJP-DSE-2014-103973

PATIENT
  Sex: 0

DRUGS (8)
  1. SEVIKAR HCT [Suspect]
     Indication: HYPERTENSION
     Dosage: 1 DF, QD
     Route: 048
     Dates: start: 20130403, end: 20130420
  2. HEIPRAM [Interacting]
     Indication: DEPRESSION
     Dosage: 1-0-0
     Route: 048
     Dates: start: 20130403, end: 20130420
  3. EXFORGE [Interacting]
     Indication: HYPERTENSION
     Dosage: 1 DF, QD
     Route: 048
     Dates: start: 20130403, end: 20130420
  4. UNIKET [Concomitant]
     Indication: MYOCARDIAL ISCHAEMIA
     Dosage: 50 MG, QD
     Route: 048
     Dates: start: 20130403
  5. INEGY [Concomitant]
     Indication: DYSLIPIDAEMIA
     Dosage: 10/20 MG, QD
     Route: 048
     Dates: start: 20130403
  6. ORFIDAL [Concomitant]
     Indication: ANXIETY
     Dosage: 1-0-0
     Route: 048
     Dates: start: 20130403, end: 20130420
  7. VESICARE [Concomitant]
     Indication: HYPERTONIC BLADDER
     Dosage: 5 MG, QD
     Route: 048
     Dates: start: 2006
  8. ADIRO [Concomitant]
     Indication: MYOCARDIAL ISCHAEMIA
     Dosage: 100 MG, QD
     Route: 048
     Dates: start: 2006

REACTIONS (3)
  - Head injury [Recovering/Resolving]
  - Subarachnoid haemorrhage [Recovering/Resolving]
  - Hyponatraemia [Recovered/Resolved]
